FAERS Safety Report 5394453-2 (Version None)
Quarter: 2007Q3

REPORT INFORMATION
  Report Type: 
  Country: None (occurrence: None)
  Receive Date: 20070723
  Receipt Date: 20070516
  Transmission Date: 20080115
  Serious: No
  Sender: FDA-Public Use
  Company Number: US-AMGEN-US225059

PATIENT
  Sex: Female

DRUGS (8)
  1. VECTIBIX [Suspect]
     Indication: COLORECTAL CANCER
     Route: 065
     Dates: start: 20061101, end: 20070501
  2. LIPITOR [Concomitant]
     Route: 065
  3. NEXIUM [Concomitant]
     Route: 065
  4. AMARYL [Concomitant]
     Route: 065
  5. SYNTHROID [Concomitant]
     Route: 065
  6. LISINOPRIL [Concomitant]
     Route: 065
  7. DETROL [Concomitant]
     Route: 065
  8. METFORMIN HCL [Concomitant]
     Route: 065

REACTIONS (1)
  - PARONYCHIA [None]
